FAERS Safety Report 9471781 (Version 1)
Quarter: 2013Q3

REPORT INFORMATION
  Report Type: Spontaneous
  Country: GB (occurrence: GB)
  Receive Date: 20130822
  Receipt Date: 20130822
  Transmission Date: 20140515
  Serious: Yes (Hospitalization, Disabling)
  Sender: FDA-Public Use
  Company Number: GB-VIIV HEALTHCARE LIMITED-B0916632A

PATIENT
  Age: 65 Year
  Sex: 0
  Weight: 75 kg

DRUGS (9)
  1. KIVEXA [Suspect]
     Indication: HIV INFECTION CDC CATEGORY B1
     Dosage: 1IUAX PER DAY
     Route: 048
     Dates: start: 20120902
  2. AMITRIPTYLINE [Concomitant]
  3. DARUNAVIR [Concomitant]
  4. RITONAVIR [Concomitant]
  5. TEMAZEPAM [Concomitant]
  6. ZOLPIDEM [Concomitant]
  7. DIHYDROCODEINE [Concomitant]
  8. MIRTAZAPINE [Concomitant]
  9. FLUOXETINE [Concomitant]

REACTIONS (2)
  - Ischaemic stroke [Recovered/Resolved with Sequelae]
  - Cerebral infarction [Unknown]
